FAERS Safety Report 7676180-1 (Version None)
Quarter: 2011Q3

REPORT INFORMATION
  Report Type: 
  Country: None (occurrence: None)
  Receive Date: 20110811
  Receipt Date: 20110805
  Transmission Date: 20111222
  Serious: Yes (Hospitalization)
  Sender: FDA-Public Use
  Company Number: NL-AMGEN-NLDSP2011026960

PATIENT
  Age: 68 Year
  Sex: Male

DRUGS (7)
  1. METHOTREXAAT [Concomitant]
     Indication: RHEUMATOID ARTHRITIS
     Dosage: 25 UNK, QWK
     Route: 058
     Dates: start: 20070807
  2. CALCIUM CARBONATE [Concomitant]
     Indication: RHEUMATOID ARTHRITIS
     Dosage: 500 MG, UNK
     Route: 048
     Dates: start: 20070807
  3. OMEPRAZOLE [Concomitant]
     Indication: RHEUMATOID ARTHRITIS
     Dosage: 20 MG, UNK
     Route: 048
     Dates: start: 20070807
  4. ENBREL [Suspect]
     Dosage: 50 MG ONCE WEEKLY
     Dates: start: 20100423
  5. PREDNISONE [Concomitant]
     Indication: RHEUMATOID ARTHRITIS
     Dosage: 10 MG, UNK
     Route: 048
     Dates: start: 20070605
  6. RISEDRONIC ACID [Concomitant]
     Indication: RHEUMATOID ARTHRITIS
     Dosage: 35 MG, UNK
     Route: 048
     Dates: start: 20070807
  7. ENBREL [Suspect]
     Indication: RHEUMATOID ARTHRITIS
     Dosage: 50 MG ONCE WEEKLY
     Dates: start: 20110501

REACTIONS (2)
  - CEREBROVASCULAR ACCIDENT [None]
  - HEMIPARESIS [None]
